FAERS Safety Report 4354487-3 (Version None)
Quarter: 2004Q2

REPORT INFORMATION
  Report Type: 
  Country: None (occurrence: None)
  Receive Date: 20040503
  Receipt Date: 20040422
  Transmission Date: 20050107
  Serious: Yes (Hospitalization)
  Sender: FDA-Public Use
  Company Number: US-JNJFOC-20040400277

PATIENT
  Age: 58 Year
  Sex: Male

DRUGS (4)
  1. DURAGESIC [Suspect]
     Indication: PAIN
     Dosage: SEE IMAGE
     Dates: start: 20000101
  2. DURAGESIC [Suspect]
  3. OXYCODONE HCL [Concomitant]
  4. PROPRANOLOL [Concomitant]

REACTIONS (7)
  - CARDIAC DISORDER [None]
  - CHEST PAIN [None]
  - HYPERHIDROSIS [None]
  - HYPERTENSION [None]
  - NAUSEA [None]
  - PHARMACEUTICAL PRODUCT COMPLAINT [None]
  - VOMITING [None]
